FAERS Safety Report 25556791 (Version 1)
Quarter: 2025Q3

REPORT INFORMATION
  Report Type: Spontaneous
  Country: US (occurrence: US)
  Receive Date: 20250715
  Receipt Date: 20250715
  Transmission Date: 20251020
  Serious: No
  Sender: PFIZER
  Company Number: US-PFIZER INC-202500142680

PATIENT
  Sex: Female

DRUGS (1)
  1. LEVOXYL [Suspect]
     Active Substance: LEVOTHYROXINE SODIUM

REACTIONS (5)
  - Product odour abnormal [Unknown]
  - Nausea [Unknown]
  - Dizziness [Unknown]
  - Paraesthesia oral [Unknown]
  - Poor quality product administered [Unknown]
